FAERS Safety Report 4712387-0 (Version None)
Quarter: 2005Q3

REPORT INFORMATION
  Report Type: 
  Country: None (occurrence: None)
  Receive Date: 20050711
  Receipt Date: 20050628
  Transmission Date: 20060218
  Serious: Yes (Other)
  Sender: FDA-Public Use
  Company Number: 2005094803

PATIENT
  Sex: Female

DRUGS (2)
  1. PROVERA [Suspect]
     Indication: HORMONE REPLACEMENT THERAPY
     Dosage: ORAL
     Route: 048
     Dates: start: 19950726
  2. PREMARIN [Suspect]
     Indication: HORMONE REPLACEMENT THERAPY
     Dosage: UNKNOWN
     Route: 065
     Dates: start: 19950726

REACTIONS (1)
  - BREAST CANCER FEMALE [None]
